FAERS Safety Report 9260319 (Version 1)
Quarter: 2013Q2

REPORT INFORMATION
  Report Type: Report from Study
  Country: CA (occurrence: CA)
  Receive Date: 20130429
  Receipt Date: 20130429
  Transmission Date: 20140414
  Serious: Yes (Other)
  Sender: FDA-Public Use
  Company Number: PHHY2013CA040913

PATIENT
  Sex: Male
  Weight: 2.14 kg

DRUGS (3)
  1. CLOZARIL [Suspect]
     Indication: SCHIZOPHRENIA
     Dosage: MATERNAL DOSE 200MG, DAILY
     Route: 064
  2. CLOZARIL [Suspect]
     Dosage: MATERNAL DOSE 50MG, DAILY
     Route: 064
  3. PAROXETIN [Concomitant]
     Indication: GENERALISED ANXIETY DISORDER
     Dosage: MATERNAL DOSE 30MG, DAILY
     Route: 064

REACTIONS (3)
  - Premature baby [Unknown]
  - Low birth weight baby [Unknown]
  - Foetal exposure during pregnancy [Unknown]
